FAERS Safety Report 15923501 (Version 1)
Quarter: 2019Q1

REPORT INFORMATION
  Report Type: Spontaneous
  Country: FR (occurrence: FR)
  Receive Date: 20190206
  Receipt Date: 20190206
  Transmission Date: 20190417
  Serious: Yes (Death)
  Sender: FDA-Public Use
  Company Number: FR-ACCORD-105652

PATIENT
  Age: 47 Year
  Sex: Male
  Weight: 54.6 kg

DRUGS (12)
  1. DIFFU K [Concomitant]
     Active Substance: POTASSIUM CHLORIDE
  2. LANSOPRAZOLE. [Concomitant]
     Active Substance: LANSOPRAZOLE
  3. ALPRAZOLAM. [Concomitant]
     Active Substance: ALPRAZOLAM
  4. OPDIVO [Suspect]
     Active Substance: NIVOLUMAB
     Indication: LUNG NEOPLASM MALIGNANT
     Route: 042
     Dates: start: 20180125, end: 20180208
  5. DOLIPRANE [Concomitant]
     Active Substance: ACETAMINOPHEN
  6. AMLODIPINE [Concomitant]
     Active Substance: AMLODIPINE BESYLATE
  7. PHOSPHONEUROS [Concomitant]
     Active Substance: CALCIUM PHOSPHATE, DIBASIC, ANHYDROUS\MAGNESIUM GLYCEROPHOSPHATE\PHOSPHORIC ACID\SODIUM PHOSPHATE, DIBASIC
  8. GEMCITABINE/GEMCITABINE HYDROCHLORIDE [Suspect]
     Active Substance: GEMCITABINE\GEMCITABINE HYDROCHLORIDE
     Indication: LUNG NEOPLASM MALIGNANT
     Route: 042
     Dates: start: 20180308, end: 20180315
  9. CORTANCYL [Concomitant]
     Active Substance: PREDNISONE
  10. BISOPROLOL [Concomitant]
     Active Substance: BISOPROLOL
  11. MOVICOL [Concomitant]
     Active Substance: POLYETHYLENE GLYCOL 3350\POTASSIUM CHLORIDE\SODIUM BICARBONATE\SODIUM CHLORIDE
  12. MORPHINE [Concomitant]
     Active Substance: MORPHINE

REACTIONS (2)
  - Acute respiratory failure [None]
  - Lung disorder [Fatal]

NARRATIVE: CASE EVENT DATE: 20180327
